FAERS Safety Report 17529356 (Version 1)
Quarter: 2020Q1

REPORT INFORMATION
  Report Type: Report from Study
  Country: US (occurrence: US)
  Receive Date: 20200311
  Receipt Date: 20200311
  Transmission Date: 20200409
  Serious: Yes (Death)
  Sender: FDA-Public Use
  Company Number: US-UNITED THERAPEUTICS-UNT-2020-003883

PATIENT
  Age: 10 Year
  Sex: Female

DRUGS (2)
  1. TREPROSTINIL SODIUM (INHALED) [Suspect]
     Active Substance: TREPROSTINIL SODIUM
     Indication: PRODUCT USED FOR UNKNOWN INDICATION
     Dosage: UNK
  2. AMBRISENTAN [Suspect]
     Active Substance: AMBRISENTAN
     Indication: PULMONARY ARTERIAL HYPERTENSION
     Dosage: 5 MG, QD
     Route: 065
     Dates: start: 20181231, end: 202002

REACTIONS (1)
  - Death [Fatal]

NARRATIVE: CASE EVENT DATE: 202002
